FAERS Safety Report 17519400 (Version 1)
Quarter: 2020Q1

REPORT INFORMATION
  Report Type: Spontaneous
  Country: US (occurrence: US)
  Receive Date: 20200310
  Receipt Date: 20200310
  Transmission Date: 20200409
  Serious: No
  Sender: FDA-Public Use
  Company Number: US-ALLERGAN-1941157US

PATIENT
  Age: 69 Year
  Sex: Female

DRUGS (7)
  1. ESTRACE [Suspect]
     Active Substance: ESTRADIOL
     Indication: PRODUCT USED FOR UNKNOWN INDICATION
  2. CALCIUM [Concomitant]
     Active Substance: CALCIUM
  3. WOMEN`S MULTI [Concomitant]
  4. FOLIC ACID. [Concomitant]
     Active Substance: FOLIC ACID
  5. JAKAFI [Suspect]
     Active Substance: RUXOLITINIB
     Indication: MYELOFIBROSIS
     Dosage: 5 MG, BID
     Dates: start: 201909
  6. ASPIRIN 81 [Concomitant]
     Active Substance: ASPIRIN
  7. COLECALCIFEROL [Concomitant]
     Active Substance: CHOLECALCIFEROL

REACTIONS (4)
  - Contusion [Unknown]
  - Vaginal haemorrhage [Unknown]
  - Feeling abnormal [Unknown]
  - Pruritus [Unknown]
